FAERS Safety Report 5255382-8 (Version None)
Quarter: 2007Q1

REPORT INFORMATION
  Report Type: 
  Country: None (occurrence: None)
  Receive Date: 20070305
  Receipt Date: 20070227
  Transmission Date: 20070707
  Serious: Yes (Hospitalization)
  Sender: FDA-Public Use
  Company Number: US-ROCHE-482906

PATIENT
  Age: 58 Year
  Sex: Male
  Weight: 90 kg

DRUGS (10)
  1. CAPECITABINE [Suspect]
     Route: 048
     Dates: start: 20061117, end: 20070202
  2. CETUXIMAB [Suspect]
     Route: 042
     Dates: start: 20061117, end: 20070202
  3. OXALIPLATIN [Suspect]
     Route: 065
     Dates: start: 20061117, end: 20070202
  4. LASIX [Concomitant]
     Route: 048
  5. SPIROLACTONE [Concomitant]
     Dosage: 50 MG AM AND 100 MG PM.
  6. PROPRANOLOL [Concomitant]
  7. K-DUR 10 [Concomitant]
  8. LACTULOSE [Concomitant]
  9. MG OXIDE [Concomitant]
  10. RANITIDINE [Concomitant]

REACTIONS (2)
  - PARONYCHIA [None]
  - PERFORMANCE STATUS DECREASED [None]
